FAERS Safety Report 13802314 (Version 1)
Quarter: 2017Q3

REPORT INFORMATION
  Report Type: Spontaneous
  Country: US (occurrence: US)
  Receive Date: 20170727
  Receipt Date: 20170727
  Transmission Date: 20171127
  Serious: Yes (Hospitalization)
  Sender: FDA-Public Use
  Company Number: US-ABBVIE-17P-163-2047292-00

PATIENT
  Age: 65 Year
  Sex: Female
  Weight: 95.25 kg

DRUGS (4)
  1. VALPAX [Suspect]
     Active Substance: CLONAZEPAM
     Indication: SEIZURE
     Route: 065
  2. DEPAKOTE ER [Suspect]
     Active Substance: DIVALPROEX SODIUM
     Route: 065
  3. DEPAKOTE ER [Suspect]
     Active Substance: DIVALPROEX SODIUM
     Indication: SEIZURE
     Route: 065
     Dates: start: 200001
  4. TOVIAZ [Suspect]
     Active Substance: FESOTERODINE FUMARATE
     Indication: URINARY TRACT DISORDER
     Route: 048

REACTIONS (1)
  - Cerebrovascular accident [Unknown]

NARRATIVE: CASE EVENT DATE: 20170602
